FAERS Safety Report 9607023 (Version 1)
Quarter: 2013Q4

REPORT INFORMATION
  Report Type: Spontaneous
  Country: FR (occurrence: FR)
  Receive Date: 20131009
  Receipt Date: 20131009
  Transmission Date: 20140711
  Serious: Yes (Hospitalization)
  Sender: FDA-Public Use
  Company Number: FR-PFIZER INC-2013288379

PATIENT
  Age: 84 Year
  Sex: Female

DRUGS (9)
  1. CORDARONE [Suspect]
     Indication: ARRHYTHMIA
     Dosage: UNK
     Route: 048
     Dates: end: 20130519
  2. PRADAXA [Interacting]
     Indication: ARRHYTHMIA
     Dosage: 110 MG, 2X/DAY
     Route: 048
     Dates: end: 20130519
  3. LEVOTHYROX [Concomitant]
     Dosage: UNK
  4. SERESTA [Concomitant]
     Dosage: UNK
  5. VITAMIN B1 [Concomitant]
     Dosage: UNK
  6. VITAMIN B6 [Concomitant]
     Dosage: UNK
  7. CACIT D3 [Concomitant]
     Dosage: UNK
  8. IMOVANE [Concomitant]
     Dosage: UNK
  9. DAFALGAN [Concomitant]
     Dosage: UNK

REACTIONS (3)
  - Drug interaction [Unknown]
  - Rectal haemorrhage [Recovered/Resolved]
  - Anaemia [Recovered/Resolved]
